FAERS Safety Report 19802407 (Version 1)
Quarter: 2021Q3

REPORT INFORMATION
  Report Type: Spontaneous
  Country: US (occurrence: US)
  Receive Date: 20210907
  Receipt Date: 20210907
  Transmission Date: 20211014
  Serious: No
  Sender: FDA-Public Use
  Company Number: None

PATIENT
  Age: 29 Year
  Sex: Female
  Weight: 63 kg

DRUGS (7)
  1. NOVOLOG [Concomitant]
     Active Substance: INSULIN ASPART
  2. MONTELUKAST [Suspect]
     Active Substance: MONTELUKAST SODIUM
     Indication: ASTHMA
     Dosage: ?          QUANTITY:1 TABLET(S);?
     Route: 048
     Dates: start: 20210804, end: 20210903
  3. MONTELUKAST [Suspect]
     Active Substance: MONTELUKAST SODIUM
     Indication: RHINITIS ALLERGIC
     Dosage: ?          QUANTITY:1 TABLET(S);?
     Route: 048
     Dates: start: 20210804, end: 20210903
  4. OFF BRAND ZYRTEC [Concomitant]
  5. MEDTRONIC 670G INSULIN PUMP [Concomitant]
  6. GUARDIAN CGM [Concomitant]
  7. MONTELUKAST [Suspect]
     Active Substance: MONTELUKAST SODIUM
     Indication: COUGH
     Dosage: ?          QUANTITY:1 TABLET(S);?
     Route: 048
     Dates: start: 20210804, end: 20210903

REACTIONS (8)
  - Restlessness [None]
  - Tic [None]
  - Emotional poverty [None]
  - Panic attack [None]
  - Palpitations [None]
  - Depression [None]
  - Mental disorder [None]
  - Suicidal ideation [None]

NARRATIVE: CASE EVENT DATE: 20210906
